FAERS Safety Report 7099259-4 (Version None)
Quarter: 2010Q4

REPORT INFORMATION
  Report Type: 
  Country: None (occurrence: None)
  Receive Date: 20101105
  Receipt Date: 20101026
  Transmission Date: 20110411
  Serious: Yes (Other)
  Sender: FDA-Public Use
  Company Number: 011290

PATIENT
  Age: 21 Year
  Sex: Female

DRUGS (5)
  1. BUSULFEX [Suspect]
     Indication: STEM CELL TRANSPLANT
     Dosage: 3.2 MG/KG, DAILY DOSE, INTRAVENOUS
     Route: 042
  2. CYCLOPHOSPHAMIDE [Concomitant]
  3. THYMOGLOBULIN [Concomitant]
  4. METHOTREXATE [Concomitant]
  5. CYCLOSPORINE [Concomitant]

REACTIONS (11)
  - ACUTE GRAFT VERSUS HOST DISEASE [None]
  - ACUTE MYELOID LEUKAEMIA RECURRENT [None]
  - CHRONIC GRAFT VERSUS HOST DISEASE [None]
  - ILEAL PERFORATION [None]
  - ILEAL STENOSIS [None]
  - ILEUS [None]
  - LEUKOPENIA [None]
  - MUCORMYCOSIS [None]
  - PERITONITIS [None]
  - STEM CELL TRANSPLANT [None]
  - THROMBOCYTOPENIA [None]
